FAERS Safety Report 6589491-8 (Version None)
Quarter: 2010Q1

REPORT INFORMATION
  Report Type: 
  Country: None (occurrence: None)
  Receive Date: 20100212
  Receipt Date: 20100127
  Transmission Date: 20100710
  Serious: Yes (Hospitalization, Other)
  Sender: FDA-Public Use
  Company Number: 100202-0000138

PATIENT
  Age: 9 Year
  Sex: Female

DRUGS (4)
  1. ELSPAR [Suspect]
     Indication: CHRONIC MYELOID LEUKAEMIA
  2. VINCRISTINE [Suspect]
     Indication: CHRONIC MYELOID LEUKAEMIA
  3. ADRIAMYCIN PFS [Suspect]
     Indication: CHRONIC MYELOID LEUKAEMIA
  4. DEXAMETHASONE TAB [Suspect]
     Indication: CHRONIC MYELOID LEUKAEMIA

REACTIONS (5)
  - BLINDNESS TRANSIENT [None]
  - BLOOD PRESSURE INCREASED [None]
  - DRUG TOXICITY [None]
  - GRAND MAL CONVULSION [None]
  - REVERSIBLE POSTERIOR LEUKOENCEPHALOPATHY SYNDROME [None]
